FAERS Safety Report 21766954 (Version 4)
Quarter: 2023Q2

REPORT INFORMATION
  Report Type: Spontaneous
  Country: US (occurrence: US)
  Receive Date: 20221222
  Receipt Date: 20230414
  Transmission Date: 20230721
  Serious: No
  Sender: FDA-Public Use
  Company Number: US-PFIZER INC-2020495942

PATIENT
  Age: 87 Year
  Sex: Female
  Weight: 78.02 kg

DRUGS (5)
  1. MENEST [Suspect]
     Active Substance: ESTROGENS, ESTERIFIED
     Indication: Ovarian failure
     Dosage: 0.625 MG, CYCLIC (TAKE 1 TABLET 3 TIMES A WEEK0
     Route: 048
  2. MENEST [Suspect]
     Active Substance: ESTROGENS, ESTERIFIED
     Indication: Autoimmune thyroiditis
  3. PREMARIN [Suspect]
     Active Substance: ESTROGENS, CONJUGATED
     Dosage: UNK
  4. LEVOTHYROXINE [Concomitant]
     Active Substance: LEVOTHYROXINE
     Indication: Autoimmune thyroiditis
     Dosage: 112 UG, 1X/DAY
  5. THYROXINE [Concomitant]
     Active Substance: LEVOTHYROXINE
     Indication: Autoimmune thyroiditis
     Dosage: UNK

REACTIONS (2)
  - Laryngitis [Unknown]
  - Off label use [Unknown]
